FAERS Safety Report 5281232-X (Version None)
Quarter: 2007Q1

REPORT INFORMATION
  Report Type: 
  Country: None (occurrence: None)
  Receive Date: 20070323
  Receipt Date: 20070309
  Transmission Date: 20070707
  Serious: Yes (Disabling)
  Sender: FDA-Public Use
  Company Number: 2007AL001011

PATIENT
  Age: 25 Year
  Sex: Male

DRUGS (2)
  1. ACYCLOVIR ORAL SUSPENSION, 200 MG/5 ML (ALPHARMA) ( ACYCLOVIR ORAL SU [Suspect]
     Indication: POST HERPETIC NEURALGIA
     Dosage: 10 MG; QD;PO
     Route: 048
     Dates: start: 20061123, end: 20061207
  2. AMITRIPTYLINE HCL [Concomitant]

REACTIONS (1)
  - DEAFNESS NEUROSENSORY [None]
